FAERS Safety Report 8818026 (Version 1)
Quarter: 2012Q4

REPORT INFORMATION
  Report Type: 
  Country: FR (occurrence: FR)
  Receive Date: 20121001
  Receipt Date: 20121001
  Transmission Date: 20130627
  Serious: Yes (Hospitalization)
  Sender: FDA-Public Use
  Company Number: FR-PFIZER INC-2012235741

PATIENT
  Age: 85 Year
  Sex: Female

DRUGS (11)
  1. ZYVOXID [Suspect]
     Dosage: UNK
     Dates: start: 20110910, end: 201109
  2. GENTAMICIN ^PANPHARMA^ [Suspect]
     Dosage: 180 mg, single
     Dates: start: 201109, end: 201109
  3. VANCOMYCINE [Suspect]
     Dosage: 2 g, 1x/day
     Route: 042
     Dates: start: 20110907, end: 20110909
  4. LASILIX [Suspect]
     Dosage: 1 DF, 1x/day
     Dates: start: 2011, end: 20110919
  5. BI-TILDIEM [Concomitant]
     Dosage: 120 mg, 2x/day
  6. CLARADOL CODEINE [Concomitant]
     Dosage: 1 DF, 1x/day
  7. COUMADINE [Concomitant]
     Dosage: 2 mg, 1x/day
  8. LEVOTHYROX [Concomitant]
     Dosage: 50 ug, 1x/day
  9. SERETIDE DISKUS [Concomitant]
     Dosage: 2 DF, 1x/day
  10. EXTENCILLINE [Concomitant]
     Dosage: 2.4 million units, 1 injection every 3 weeks
  11. CERIS [Concomitant]
     Dosage: 20 mg, 2x/day

REACTIONS (2)
  - Renal failure acute [Recovered/Resolved]
  - Pancytopenia [Recovered/Resolved]
